FAERS Safety Report 21003405 (Version 1)
Quarter: 2022Q2

REPORT INFORMATION
  Report Type: Other
  Country: US (occurrence: US)
  Receive Date: 20220624
  Receipt Date: 20220624
  Transmission Date: 20220720
  Serious: Yes (Hospitalization)
  Sender: FDA-Public Use
  Company Number: US-HLS-202200627

PATIENT
  Age: 42 Year
  Sex: Male

DRUGS (3)
  1. CLOZAPINE [Suspect]
     Active Substance: CLOZAPINE
     Indication: Schizophrenia
     Dosage: CLOZAPINE 100 MG IN THE MORNING AND 300 MG IN THE EVENING FOR AT LEAST THREE YEARS
     Route: 065
  2. CLOZAPINE [Suspect]
     Active Substance: CLOZAPINE
     Indication: Schizophrenia
     Dosage: TWICE DAILY WITH PLANS TO INCREASE SLOWLY TO?THERAPEUTIC DOSES IN THE OUTPATIENT SETTING.
     Route: 065
  3. CLOZAPINE [Suspect]
     Active Substance: CLOZAPINE
     Indication: Schizophrenia
     Route: 065

REACTIONS (4)
  - Mental status changes [Unknown]
  - Somnolence [Unknown]
  - Treatment noncompliance [Unknown]
  - Dysarthria [Unknown]
